FAERS Safety Report 21715225 (Version 2)
Quarter: 2022Q4

REPORT INFORMATION
  Report Type: Report from Study
  Country: US (occurrence: US)
  Receive Date: 20221212
  Receipt Date: 20221213
  Transmission Date: 20230112
  Serious: No
  Sender: FDA-Public Use
  Company Number: US-ABBVIE-4208514

PATIENT
  Age: 33 Year
  Sex: Female

DRUGS (13)
  1. HUMIRA [Suspect]
     Active Substance: ADALIMUMAB
     Indication: Ankylosing spondylitis
     Dosage: CITRATE FREE
     Route: 058
  2. DOXEPIN HCL [Concomitant]
     Active Substance: DOXEPIN HYDROCHLORIDE
     Indication: Product used for unknown indication
     Dosage: CAP 25MG
  3. DOXEPIN HCL [Concomitant]
     Active Substance: DOXEPIN HYDROCHLORIDE
     Indication: Product used for unknown indication
     Dosage: CAP 100MG
  4. TOPIRAMATE [Concomitant]
     Active Substance: TOPIRAMATE
     Indication: Product used for unknown indication
     Dosage: TAB 100MG
  5. TROKENDI XR CP2 [Concomitant]
     Indication: Product used for unknown indication
     Dosage: 200MG
  6. GABAPENTIN [Concomitant]
     Active Substance: GABAPENTIN
     Indication: Product used for unknown indication
     Dosage: CAP 400MG
  7. FLOVENT HFA AER [Concomitant]
     Indication: Product used for unknown indication
     Dosage: 110MCG/AC
  8. HYDROXYZINE [Concomitant]
     Active Substance: HYDROXYZINE HYDROCHLORIDE
     Indication: Product used for unknown indication
     Dosage: TAB 50MG
  9. CLONAZEPAM [Concomitant]
     Active Substance: CLONAZEPAM
     Indication: Product used for unknown indication
     Dosage: TAB 0.5MG
  10. VEN AFAXINE CP2 [Concomitant]
     Indication: Product used for unknown indication
     Dosage: 37.5MG
  11. ARIPIPRAZOLE [Concomitant]
     Active Substance: ARIPIPRAZOLE
     Indication: Product used for unknown indication
     Dosage: TAB 10MG
  12. ARIPIPRAZOLE [Concomitant]
     Active Substance: ARIPIPRAZOLE
     Indication: Product used for unknown indication
     Dosage: TAB 2MG
  13. CELECOXIB [Concomitant]
     Active Substance: CELECOXIB
     Indication: Product used for unknown indication
     Dosage: CAP 200MG

REACTIONS (3)
  - Pain [Not Recovered/Not Resolved]
  - Ankylosing spondylitis [Unknown]
  - Drug ineffective [Unknown]

NARRATIVE: CASE EVENT DATE: 20220727
